FAERS Safety Report 8191875-1 (Version None)
Quarter: 2012Q1

REPORT INFORMATION
  Report Type: 
  Country: None (occurrence: None)
  Receive Date: 20120307
  Receipt Date: 20120224
  Transmission Date: 20120608
  Serious: Yes (Other)
  Sender: FDA-Public Use
  Company Number: PHHY2012JP016833

PATIENT
  Sex: Female

DRUGS (1)
  1. GLEEVEC [Suspect]
     Route: 048

REACTIONS (4)
  - CARDIAC FAILURE [None]
  - PULMONARY ALVEOLAR HAEMORRHAGE [None]
  - INTERSTITIAL LUNG DISEASE [None]
  - PULMONARY HAEMOSIDEROSIS [None]
